FAERS Safety Report 15711495 (Version 1)
Quarter: 2018Q4

REPORT INFORMATION
  Report Type: Report from Study
  Country: None (occurrence: DO)
  Receive Date: 20181211
  Receipt Date: 20181211
  Transmission Date: 20190205
  Serious: Yes (Other)
  Sender: FDA-Public Use
  Company Number: DO-ABBVIE-18K-279-2587821-00

PATIENT
  Sex: Female
  Weight: 59 kg

DRUGS (1)
  1. HUMIRA [Suspect]
     Active Substance: ADALIMUMAB
     Indication: RHEUMATOID ARTHRITIS
     Route: 058
     Dates: start: 20120401

REACTIONS (4)
  - Uveitis [Recovering/Resolving]
  - Cataract [Recovering/Resolving]
  - Pain [Recovering/Resolving]
  - Glaucoma [Recovering/Resolving]

NARRATIVE: CASE EVENT DATE: 2017
